FAERS Safety Report 7285470-6 (Version None)
Quarter: 2011Q1

REPORT INFORMATION
  Report Type: 
  Country: None (occurrence: None)
  Receive Date: 20110210
  Receipt Date: 20110203
  Transmission Date: 20110831
  Serious: Yes (Hospitalization)
  Sender: FDA-Public Use
  Company Number: US-NOVOPROD-322499

PATIENT
  Sex: Male
  Weight: 160.9 kg

DRUGS (12)
  1. NORDITROPIN NORDIFLEX [Suspect]
     Indication: BLOOD GROWTH HORMONE DECREASED
     Dosage: 0.3 MG, QD
     Route: 058
     Dates: start: 20091201, end: 20100101
  2. SYNTHROID [Concomitant]
     Dosage: 300 UG, QD
  3. NORDITROPIN NORDIFLEX [Suspect]
     Indication: GROWTH HORMONE DEFICIENCY
     Dosage: 0.3 MG, QD
     Route: 058
     Dates: start: 20070301, end: 20090101
  4. VITAMIN B12                        /00056201/ [Concomitant]
     Dosage: 1000 UG, QD
     Route: 048
  5. PAXIL [Concomitant]
     Dosage: 30 MG, QD
  6. DELATESTRYL [Concomitant]
     Dosage: 300 MG, BIW
     Route: 030
  7. RELAFEN [Concomitant]
     Dosage: 1 G, QD
  8. MORPHINE SULFATE [Concomitant]
     Dosage: 3MG TABS, 2 TABS THREE TIMES DAILY AS NEEDED
     Route: 048
  9. ADVAIR [Concomitant]
     Dosage: 1 PUFF, BID
  10. MS CONTIN [Concomitant]
     Dosage: 200 MG, TID
  11. ALBUTEROL [Concomitant]
     Dosage: UNK
  12. VITAMIN E                          /00110501/ [Concomitant]
     Dosage: 50000 U, QW

REACTIONS (2)
  - ARTHRITIS INFECTIVE [None]
  - KNEE ARTHROPLASTY [None]
